FAERS Safety Report 7517915-8 (Version None)
Quarter: 2011Q2

REPORT INFORMATION
  Report Type: 
  Country: None (occurrence: None)
  Receive Date: 20110602
  Receipt Date: 20110525
  Transmission Date: 20111010
  Serious: Yes (Hospitalization, Other)
  Sender: FDA-Public Use
  Company Number: US-BAYER-2011-045341

PATIENT
  Sex: Female

DRUGS (1)
  1. YASMIN [Suspect]

REACTIONS (6)
  - PAIN [None]
  - ANXIETY [None]
  - ABDOMINAL PAIN [None]
  - GALLBLADDER DISORDER [None]
  - GALLBLADDER INJURY [None]
  - INJURY [None]
